FAERS Safety Report 9793534 (Version 2)
Quarter: 2014Q1

REPORT INFORMATION
  Report Type: Report from Study
  Country: DE (occurrence: DE)
  Receive Date: 20140102
  Receipt Date: 20140127
  Transmission Date: 20141002
  Serious: Yes (Other)
  Sender: FDA-Public Use
  Company Number: DE-BRISTOL-MYERS SQUIBB COMPANY-19958982

PATIENT
  Age: 51 Year
  Sex: Female
  Weight: 64 kg

DRUGS (3)
  1. CETUXIMAB [Suspect]
     Indication: NON-SMALL CELL LUNG CANCER
     Dosage: DOSAGE:250MG/M2INF,06-06SEP11: 400MG/M2,ONCE;20SEP-02NOV11,MOST RECENT ADM DATE: 02NOV11
     Route: 042
     Dates: start: 20110906
  2. CISPLATIN [Suspect]
     Indication: NON-SMALL CELL LUNG CANCER
     Dosage: DOSAGE:DAY 1 OF CYCLE,INF,06SEP-18OCT11,1 IN 3WK,MOST RECENT ADM DATE: 18OCT11
     Route: 042
     Dates: start: 20110906
  3. DOCETAXEL [Suspect]
     Indication: NON-SMALL CELL LUNG CANCER
     Dosage: DOSAGE:DAY 1 OF CYCLE,INF,06SEP-18OCT11,1 IN 3WK,MOST RECENT ADM DATE: 18OCT11
     Route: 042
     Dates: start: 20110906

REACTIONS (2)
  - Electrolyte imbalance [Unknown]
  - Nausea [Unknown]
